FAERS Safety Report 20216567 (Version 1)
Quarter: 2021Q4

REPORT INFORMATION
  Report Type: Spontaneous
  Country: US (occurrence: None)
  Receive Date: 20211221
  Receipt Date: 20211221
  Transmission Date: 20220304
  Serious: Yes (Life-Threatening, Hospitalization)
  Sender: FDA-Public Use
  Company Number: None

PATIENT
  Age: 90 Year
  Sex: Male
  Weight: 90 kg

DRUGS (1)
  1. APIXABAN [Suspect]
     Active Substance: APIXABAN
     Dosage: FREQUENCY : TWICE A DAY;?
     Route: 048
     Dates: start: 20210528, end: 20211013

REACTIONS (4)
  - Bradycardia [None]
  - Anaemia [None]
  - Gastric haemorrhage [None]
  - Blood pressure systolic decreased [None]

NARRATIVE: CASE EVENT DATE: 20211013
